FAERS Safety Report 5904140-7 (Version None)
Quarter: 2008Q3

REPORT INFORMATION
  Report Type: 
  Country: None (occurrence: None)
  Receive Date: 20080919
  Receipt Date: 20080701
  Transmission Date: 20090109
  Serious: Yes (Other)
  Sender: FDA-Public Use
  Company Number: US-WYE-H04871308

PATIENT
  Age: 35 Year
  Sex: Female
  Weight: 141.19 kg

DRUGS (7)
  1. PRISTIQ [Suspect]
     Indication: DEPRESSION
     Dosage: 50 MG 1X PER 1 TOT, ORAL
     Route: 048
     Dates: start: 20080626, end: 20080626
  2. GEMFIBROZIL [Concomitant]
  3. LEVOXYL (LEVOTHYROXINE SODUIM) [Concomitant]
  4. LIPITOR [Concomitant]
  5. METFORMIN HCL [Concomitant]
  6. HYDROCHLOROTHIAZIDE [Concomitant]
  7. NUVARING [Concomitant]

REACTIONS (7)
  - DYSPNOEA [None]
  - FEELING COLD [None]
  - HYPERTENSION [None]
  - HYPERVENTILATION [None]
  - HYPOAESTHESIA [None]
  - PANIC ATTACK [None]
  - PERIPHERAL COLDNESS [None]
